FAERS Safety Report 6011713-2 (Version None)
Quarter: 2008Q4

REPORT INFORMATION
  Report Type: 
  Country: None (occurrence: None)
  Receive Date: 20081218
  Receipt Date: 19930819
  Transmission Date: 20090506
  Serious: Yes (Death)
  Sender: FDA-Public Use
  Company Number: NL-ROCHE-930194008001

PATIENT
  Sex: Male
  Weight: 77 kg

DRUGS (11)
  1. INTERFERON ALFA-2A [Suspect]
     Route: 058
     Dates: start: 19911224, end: 19911226
  2. INTERFERON ALFA-2A [Suspect]
     Route: 058
     Dates: start: 19911227, end: 19920118
  3. DACARBAZINE [Suspect]
     Route: 042
     Dates: start: 19911230
  4. DACARBAZINE [Suspect]
     Route: 042
  5. DEXAMETHASONE [Concomitant]
     Route: 042
     Dates: start: 19911230
  6. ZOFRAN [Concomitant]
     Indication: ANTIEMETIC SUPPORTIVE CARE
     Dosage: FREQUENCY REPORTED AS 2XDD
     Route: 048
     Dates: start: 19911230
  7. MOGADON [Concomitant]
     Route: 065
     Dates: start: 19920110
  8. MORPHINE [Concomitant]
     Route: 065
     Dates: start: 19920121
  9. DALMADORM [Concomitant]
     Route: 065
     Dates: start: 19920121
  10. DICLOFENAC SODIUM [Concomitant]
     Route: 065
     Dates: start: 19920121
  11. LACTULOSE [Concomitant]
     Route: 065
     Dates: start: 19920121

REACTIONS (1)
  - DISEASE PROGRESSION [None]
